FAERS Safety Report 20472191 (Version 2)
Quarter: 2023Q2

REPORT INFORMATION
  Report Type: Spontaneous
  Country: JP (occurrence: JP)
  Receive Date: 20220214
  Receipt Date: 20230601
  Transmission Date: 20230721
  Serious: Yes (Hospitalization)
  Sender: FDA-Public Use
  Company Number: JP-SUNPHARMA-2022R1-325972AA

PATIENT
  Age: 73 Year
  Sex: Female
  Weight: 47 kg

DRUGS (8)
  1. ILUMYA [Suspect]
     Active Substance: TILDRAKIZUMAB-ASMN
     Indication: Psoriasis
     Dosage: 100 MILLIGRAM, QD
     Route: 058
     Dates: start: 20220104
  2. ILUMYA [Suspect]
     Active Substance: TILDRAKIZUMAB-ASMN
     Dosage: 100 MILLIGRAM, QD
     Route: 058
     Dates: start: 20220425
  3. ILUMYA [Suspect]
     Active Substance: TILDRAKIZUMAB-ASMN
     Dosage: 100 MILLIGRAM, QD
     Route: 058
     Dates: start: 20220725
  4. ILUMYA [Suspect]
     Active Substance: TILDRAKIZUMAB-ASMN
     Dosage: 100 MILLIGRAM, QD
     Route: 058
     Dates: start: 20221024
  5. DOVOBET GEL [Concomitant]
     Indication: Psoriasis
     Dosage: APPROPRIATE QUANTITY
     Route: 062
  6. OXAROL OINTMENT [Concomitant]
     Indication: Psoriasis
     Dosage: APPROPRIATE QUANTITY
     Route: 062
  7. ANTEBATE LOTION [Concomitant]
     Indication: Psoriasis
     Dosage: APPROPRIATE QUANTITY
     Route: 062
  8. ECLAR:LOTION [Concomitant]
     Indication: Psoriasis
     Dosage: APPROPRIATE QUANTITY
     Route: 062

REACTIONS (2)
  - Hyperkalaemia [Recovered/Resolved]
  - Tinea pedis [Recovering/Resolving]

NARRATIVE: CASE EVENT DATE: 20220112
